FAERS Safety Report 7054402-8 (Version None)
Quarter: 2010Q4

REPORT INFORMATION
  Report Type: 
  Country: None (occurrence: None)
  Receive Date: 20101020
  Receipt Date: 20101015
  Transmission Date: 20110411
  Serious: Yes (Death)
  Sender: FDA-Public Use
  Company Number: JP-ROCHE-725406

PATIENT
  Sex: Female
  Weight: 47 kg

DRUGS (21)
  1. TOCILIZUMAB [Suspect]
     Indication: RHEUMATOID ARTHRITIS
     Dosage: FORM: INJECTION
     Route: 041
     Dates: start: 20090818, end: 20090818
  2. TOCILIZUMAB [Suspect]
     Route: 041
     Dates: start: 20090915, end: 20090915
  3. TOCILIZUMAB [Suspect]
     Route: 041
     Dates: start: 20091013, end: 20091013
  4. TOCILIZUMAB [Suspect]
     Route: 041
     Dates: start: 20091110, end: 20091110
  5. TOCILIZUMAB [Suspect]
     Route: 041
     Dates: start: 20091208, end: 20091208
  6. TOCILIZUMAB [Suspect]
     Route: 041
     Dates: start: 20100105, end: 20100105
  7. TOCILIZUMAB [Suspect]
     Route: 041
     Dates: start: 20100202, end: 20100202
  8. TOCILIZUMAB [Suspect]
     Route: 041
     Dates: start: 20100303, end: 20100303
  9. TOCILIZUMAB [Suspect]
     Route: 041
     Dates: start: 20100330, end: 20100330
  10. TOCILIZUMAB [Suspect]
     Route: 041
     Dates: start: 20100608, end: 20100608
  11. TOCILIZUMAB [Suspect]
     Route: 041
     Dates: start: 20100706, end: 20100706
  12. METHOTREXATE [Concomitant]
     Dosage: FORM: PER ORAL AGENT
     Route: 048
  13. PREDNISOLONE [Concomitant]
     Dosage: FORM: PER ORAL AGENT
     Route: 048
  14. ALFAROL [Concomitant]
     Dosage: FORM: PER ORAL AGENT
     Route: 048
  15. ACTONEL [Concomitant]
     Dosage: GENERIC NAME REPORTED AS: SODIUM RISEDRONATE HYDRATE
     Route: 048
  16. LOXONIN [Concomitant]
     Dosage: GENERIC NAME REPORTED AS: LOXOPROFEN SODIUM
     Route: 048
  17. MARZULENE [Concomitant]
     Dosage: FORM: PER ORAL AGENT, GENERIC NAME: AZULENE SULFONATE SODIUM
     Route: 048
  18. MUCOSTA [Concomitant]
     Dosage: FORM: GRANULATED POWDER
     Route: 048
  19. TECELEUKIN [Concomitant]
     Dosage: DRUG NAME: IMUNACE/TECELEUKIN(GENETICAL RECOMBINATION)
     Route: 041
     Dates: start: 20090713, end: 20100122
  20. TECELEUKIN [Concomitant]
     Route: 041
     Dates: start: 20100129, end: 20100512
  21. TAXOTERE [Concomitant]
     Dosage: NOTE: DOSAGE IS UNCERTAIN, FREQUENCY: 3/4 WEEK(S)
     Route: 042
     Dates: start: 20100129, end: 20100709

REACTIONS (2)
  - ANGIOSARCOMA [None]
  - BRAIN ABSCESS [None]
